FAERS Safety Report 7000241-3 (Version None)
Quarter: 2010Q3

REPORT INFORMATION
  Report Type: 
  Country: None (occurrence: None)
  Receive Date: 20100920
  Receipt Date: 20070627
  Transmission Date: 20110219
  Serious: Yes (Disabling, Other)
  Sender: FDA-Public Use
  Company Number: US-ASTRAZENECA-2006UW11488

PATIENT
  Sex: Male
  Weight: 86.2 kg

DRUGS (11)
  1. SEROQUEL [Suspect]
     Indication: DEPRESSION
     Dosage: 100-500MG
     Route: 048
     Dates: start: 20040303
  2. SEROQUEL [Suspect]
     Indication: SCHIZOPHRENIA
     Dosage: 100-500MG
     Route: 048
     Dates: start: 20040303
  3. SEROQUEL [Suspect]
     Route: 048
     Dates: start: 20050103
  4. SEROQUEL [Suspect]
     Route: 048
     Dates: start: 20050103
  5. ZYPREXA [Suspect]
  6. RISPERDAL [Concomitant]
  7. GLUCOPHAGE [Concomitant]
     Route: 048
     Dates: start: 20031218
  8. LEVOTHYROXINE [Concomitant]
     Route: 048
     Dates: start: 20020604
  9. HUMALOG MIX 75/25 [Concomitant]
     Dosage: TWO TIMES A DAY
     Route: 058
     Dates: start: 20030804
  10. TRICOR [Concomitant]
     Route: 048
     Dates: start: 20030804
  11. NOVOLOG MIX 70/30 [Concomitant]
     Route: 058
     Dates: start: 20041208

REACTIONS (2)
  - DIABETES MELLITUS [None]
  - PANCREATITIS [None]
